FAERS Safety Report 5133886-6 (Version None)
Quarter: 2006Q4

REPORT INFORMATION
  Report Type: 
  Country: None (occurrence: None)
  Receive Date: 20061023
  Receipt Date: 20061023
  Transmission Date: 20070319
  Serious: Yes (Death)
  Sender: FDA-Public Use
  Company Number: None

PATIENT
  Age: 21 Year
  Sex: Male
  Weight: 72.5755 kg

DRUGS (4)
  1. STRATTERA [Suspect]
     Indication: DEPRESSION
     Dosage: 80MG IN THE MORNING PO
     Route: 048
     Dates: start: 20030829, end: 20050307
  2. EFFEXOR [Suspect]
     Indication: ATTENTION DEFICIT/HYPERACTIVITY DISORDER
     Dosage: 150MG ONCE A DAY
     Dates: start: 20031229, end: 20050211
  3. STRATTERA [Concomitant]
  4. EFFEXOR [Concomitant]

REACTIONS (2)
  - COMPLETED SUICIDE [None]
  - INJURY ASPHYXIATION [None]
